FAERS Safety Report 7163967-7 (Version None)
Quarter: 2010Q4

REPORT INFORMATION
  Report Type: 
  Country: None (occurrence: None)
  Receive Date: 20101215
  Receipt Date: 20101203
  Transmission Date: 20110411
  Serious: Yes (Hospitalization, Congenital Anomaly)
  Sender: FDA-Public Use
  Company Number: A0684461A

PATIENT
  Sex: Male
  Weight: 4.4 kg

DRUGS (2)
  1. PAXIL [Suspect]
     Indication: ANXIETY
     Dosage: 20MG PER DAY
  2. PAROXETINE HYDROCHLORIDE [Suspect]
     Indication: DEPRESSION

REACTIONS (6)
  - ATRIAL SEPTAL DEFECT [None]
  - CONGENITAL ANOMALY [None]
  - DRUG EXPOSURE DURING PREGNANCY [None]
  - PERSISTENT FOETAL CIRCULATION [None]
  - PULMONARY MALFORMATION [None]
  - VENTRICULAR SEPTAL DEFECT [None]
